FAERS Safety Report 8979258 (Version 2)
Quarter: 2013Q3

REPORT INFORMATION
  Report Type: Report from Study
  Country: GB (occurrence: GB)
  Receive Date: 20121221
  Receipt Date: 20130704
  Transmission Date: 20140515
  Serious: Yes (Hospitalization)
  Sender: FDA-Public Use
  Company Number: GB-AMGEN-GBRCT2012082374

PATIENT
  Age: 61 Year
  Sex: Female
  Weight: 71 kg

DRUGS (4)
  1. ETANERCEPT [Suspect]
     Indication: RHEUMATOID ARTHRITIS
     Dosage: 25 MG, 2 TIMES/WK
     Route: 065
     Dates: start: 20050715, end: 20071015
  2. METHOTREXATE [Concomitant]
     Dosage: UNK MG, UNK
  3. CYCLOSPORINE [Concomitant]
     Dosage: UNK
  4. WARFARIN [Concomitant]
     Indication: AORTIC VALVE REPLACEMENT
     Dosage: UNK

REACTIONS (1)
  - Bladder cancer [Recovered/Resolved]
